FAERS Safety Report 15686464 (Version 1)
Quarter: 2018Q4

REPORT INFORMATION
  Report Type: Spontaneous
  Country: US (occurrence: US)
  Receive Date: 20181204
  Receipt Date: 20181204
  Transmission Date: 20190205
  Serious: No
  Sender: FDA-Public Use
  Company Number: US-BAYER-2018-219175

PATIENT
  Sex: Female

DRUGS (16)
  1. PROBIOTICA [Concomitant]
     Active Substance: PROBIOTICS NOS
  2. TUMS [Concomitant]
     Active Substance: CALCIUM CARBONATE
  3. DIAZEPAM. [Concomitant]
     Active Substance: DIAZEPAM
  4. METHOTREXATE. [Concomitant]
     Active Substance: METHOTREXATE
  5. BIOTIN [Concomitant]
     Active Substance: BIOTIN
  6. BUTRANS [Concomitant]
     Active Substance: BUPRENORPHINE
  7. REMICADE [Concomitant]
     Active Substance: INFLIXIMAB
  8. DIPHENHYDRAMINE HYDROCHLORIDE. [Concomitant]
     Active Substance: DIPHENHYDRAMINE HYDROCHLORIDE
  9. DIFLUCAN [Concomitant]
     Active Substance: FLUCONAZOLE
  10. FOLIC ACID. [Concomitant]
     Active Substance: FOLIC ACID
  11. PRINIVIL [Concomitant]
     Active Substance: LISINOPRIL
  12. TRAMADOL. [Concomitant]
     Active Substance: TRAMADOL
  13. VITAMIN D3 [Concomitant]
     Active Substance: CHOLECALCIFEROL
  14. CLARITIN-D 12 HOUR [Suspect]
     Active Substance: LORATADINE\PSEUDOEPHEDRINE SULFATE
  15. ACETYLSALICYLIC ACID (} 100 MG, FAST RELEASE) [Suspect]
     Active Substance: ASPIRIN
  16. NEURONTIN [Concomitant]
     Active Substance: GABAPENTIN

REACTIONS (2)
  - Drug hypersensitivity [None]
  - Drug hypersensitivity [Unknown]
